FAERS Safety Report 5199899-3 (Version None)
Quarter: 2007Q1

REPORT INFORMATION
  Report Type: 
  Country: None (occurrence: None)
  Receive Date: 20070102
  Receipt Date: 20070102
  Transmission Date: 20070707
  Serious: Yes (Hospitalization, Disabling)
  Sender: FDA-Public Use
  Company Number: None

PATIENT
  Age: 60 Year
  Sex: Male
  Weight: 71 kg

DRUGS (2)
  1. LITHIUM CARBONATE [Suspect]
     Indication: BIPOLAR DISORDER
     Dosage: 300MG/450MG    QAM/QHS   PO
     Route: 048
     Dates: start: 20030613, end: 20061129
  2. CITALOPRAM HYDROBROMIDE [Suspect]
     Indication: DEPRESSION
     Dosage: 40MG  QD  PO
     Route: 048
     Dates: start: 20060318, end: 20061129

REACTIONS (4)
  - DELIRIUM [None]
  - DIABETES INSIPIDUS [None]
  - HYPERNATRAEMIA [None]
  - SEROTONIN SYNDROME [None]
